FAERS Safety Report 7327479-X (Version None)
Quarter: 2011Q1

REPORT INFORMATION
  Report Type: 
  Country: None (occurrence: None)
  Receive Date: 20110303
  Receipt Date: 20110222
  Transmission Date: 20110831
  Serious: Yes (Other)
  Sender: FDA-Public Use
  Company Number: US-BIOGENIDEC-2011BI001199

PATIENT
  Age: 39 Year
  Sex: Female

DRUGS (2)
  1. SEIZURE MEDICATION (NOS) [Concomitant]
     Indication: CONVULSION
  2. TYSABRI [Suspect]
     Indication: MULTIPLE SCLEROSIS
     Route: 042
     Dates: start: 20080502

REACTIONS (5)
  - STRESS [None]
  - MULTIPLE SCLEROSIS RELAPSE [None]
  - CONVULSION [None]
  - FALL [None]
  - MUSCULAR WEAKNESS [None]
